FAERS Safety Report 4389274-3 (Version None)
Quarter: 2004Q2

REPORT INFORMATION
  Report Type: 
  Country: None (occurrence: None)
  Receive Date: 20040628
  Receipt Date: 20040621
  Transmission Date: 20050107
  Serious: Yes (Hospitalization)
  Sender: FDA-Public Use
  Company Number: 2004-05-0443

PATIENT
  Age: 30 Year
  Sex: Male

DRUGS (3)
  1. PEG-INTRON [Suspect]
     Indication: HEPATITIS C
     Dosage: 80 UG SUBCUTANEOUS
     Route: 058
     Dates: start: 20040407, end: 20040407
  2. REBETOL [Suspect]
     Indication: HEPATITIS C
     Dosage: 800 MG
     Dates: start: 20040407, end: 20040407
  3. SURMONTIL [Concomitant]

REACTIONS (5)
  - BLOOD CREATINE PHOSPHOKINASE INCREASED [None]
  - HYPERVENTILATION [None]
  - INFLUENZA LIKE ILLNESS [None]
  - PANIC ATTACK [None]
  - PYREXIA [None]
